FAERS Safety Report 8422587-4 (Version None)
Quarter: 2012Q2

REPORT INFORMATION
  Report Type: 
  Country: None (occurrence: None)
  Receive Date: 20120608
  Receipt Date: 20120605
  Transmission Date: 20120825
  Serious: Yes (Other)
  Sender: FDA-Public Use
  Company Number: CA-ROCHE-1075675

PATIENT
  Sex: Female
  Weight: 90.8 kg

DRUGS (9)
  1. ASPIRIN [Concomitant]
  2. FOLIC ACID [Concomitant]
  3. HYDROCHLOROTHIAZDE TAB [Concomitant]
  4. ACTEMRA [Suspect]
     Indication: POLYMYALGIA RHEUMATICA
     Route: 042
     Dates: start: 20110922, end: 20120329
  5. BISOPROLOL FUMARATE [Concomitant]
  6. PREDNISONE TAB [Concomitant]
  7. METHOTREXATE [Concomitant]
  8. ACTONEL [Concomitant]
  9. CALCIUM [Concomitant]

REACTIONS (1)
  - PHLEBITIS [None]
